FAERS Safety Report 8990761 (Version 1)
Quarter: 2012Q4

REPORT INFORMATION
  Report Type: Spontaneous
  Country: US (occurrence: None)
  Receive Date: 20121226
  Receipt Date: 20121226
  Transmission Date: 20130627
  Serious: Yes (Hospitalization)
  Sender: FDA-Public Use
  Company Number: None

PATIENT
  Age: 65 Year
  Sex: Male
  Weight: 89.5 kg

DRUGS (2)
  1. LISINOPRIL [Suspect]
     Dosage: 40 MG EVERY DAY PO
     Route: 048
     Dates: start: 19990810, end: 20121106
  2. AZITHROMYCIN [Suspect]
     Dosage: 250 MG EVERY DAY PO
     Route: 048
     Dates: start: 20121102, end: 20121106

REACTIONS (1)
  - Angioedema [None]
